FAERS Safety Report 18070444 (Version 1)
Quarter: 2020Q3

REPORT INFORMATION
  Report Type: Spontaneous
  Country: US (occurrence: US)
  Receive Date: 20200727
  Receipt Date: 20200727
  Transmission Date: 20201103
  Serious: Yes (Hospitalization, Other)
  Sender: FDA-Public Use
  Company Number: US-EDENBRIDGE PHARMACEUTICALS, LLC-US-2020EDE000025

PATIENT
  Sex: Female

DRUGS (1)
  1. OPIUM TINCTURE [Suspect]
     Active Substance: MORPHINE
     Indication: PRODUCT USED FOR UNKNOWN INDICATION
     Dosage: UNK
     Dates: start: 1998

REACTIONS (6)
  - Gastrointestinal disorder [Unknown]
  - Umbilicoplasty [Unknown]
  - Appendicectomy [Unknown]
  - Hernia [Unknown]
  - Caesarean section [Unknown]
  - Surgery [Unknown]
